FAERS Safety Report 6155783-X (Version None)
Quarter: 2009Q2

REPORT INFORMATION
  Report Type: 
  Country: None (occurrence: None)
  Receive Date: 20090415
  Receipt Date: 20090407
  Transmission Date: 20091009
  Serious: No
  Sender: FDA-Public Use
  Company Number: PHHO2008US13066

PATIENT
  Age: 75 Year
  Sex: Female

DRUGS (2)
  1. ZELMAC HTF+TAB [Suspect]
     Indication: CONSTIPATION
     Dosage: 6MG BID
     Route: 048
     Dates: start: 20080901
  2. MICROBID [Concomitant]

REACTIONS (10)
  - DENTAL CARIES [None]
  - DRY MOUTH [None]
  - EYE DISORDER [None]
  - GASTROINTESTINAL INFLAMMATION [None]
  - HAEMOPTYSIS [None]
  - HIATUS HERNIA [None]
  - HYPOAESTHESIA ORAL [None]
  - NASAL DRYNESS [None]
  - OROPHARYNGEAL PAIN [None]
  - PHARYNGITIS [None]
